FAERS Safety Report 25759859 (Version 3)
Quarter: 2025Q4

REPORT INFORMATION
  Report Type: Spontaneous
  Country: US (occurrence: US)
  Receive Date: 20250904
  Receipt Date: 20251027
  Transmission Date: 20260118
  Serious: Yes (Hospitalization)
  Sender: MALLINCKRODT
  Company Number: US-MALLINCKRODT-MNK202505364

PATIENT
  Age: 58 Year
  Sex: Female
  Weight: 223 kg

DRUGS (4)
  1. CORTICOTROPIN [Suspect]
     Active Substance: CORTICOTROPIN
     Indication: Psoriasis
     Dosage: 40 UNITS
     Route: 058
  2. CORTICOTROPIN [Suspect]
     Active Substance: CORTICOTROPIN
     Indication: Osteoarthritis
     Dosage: 40 UNITS
     Route: 058
     Dates: start: 20251012
  3. CORTICOTROPIN [Suspect]
     Active Substance: CORTICOTROPIN
     Indication: Cutaneous sarcoidosis
  4. CORTICOTROPIN [Suspect]
     Active Substance: CORTICOTROPIN
     Indication: Sarcoidosis

REACTIONS (6)
  - Knee arthroplasty [Recovering/Resolving]
  - Blood pressure abnormal [Unknown]
  - Asthma [Unknown]
  - Nausea [Recovered/Resolved]
  - Fear of injection [Unknown]
  - Injection site discharge [Unknown]

NARRATIVE: CASE EVENT DATE: 20251001
